FAERS Safety Report 13032978 (Version 1)
Quarter: 2016Q4

REPORT INFORMATION
  Report Type: Spontaneous
  Country: DE (occurrence: DE)
  Receive Date: 20161215
  Receipt Date: 20161215
  Transmission Date: 20170207
  Serious: Yes (Disabling)
  Sender: FDA-Public Use
  Company Number: DE-TEVA-718074GER

PATIENT
  Age: 36 Year
  Sex: Male
  Weight: 68 kg

DRUGS (1)
  1. LEVOFLOXACIN. [Suspect]
     Active Substance: LEVOFLOXACIN
     Indication: BRONCHITIS
     Dosage: 1 DOSAGE FORMS DAILY;
     Route: 048

REACTIONS (11)
  - Night sweats [Recovering/Resolving]
  - Skin atrophy [Recovering/Resolving]
  - Poor peripheral circulation [Recovering/Resolving]
  - Neck pain [Recovering/Resolving]
  - Weight decreased [Recovering/Resolving]
  - Sensory level abnormal [Recovering/Resolving]
  - Connective tissue disorder [Recovering/Resolving]
  - Dizziness [Recovering/Resolving]
  - Myosclerosis [Recovering/Resolving]
  - Arthralgia [Recovering/Resolving]
  - Back pain [Recovering/Resolving]

NARRATIVE: CASE EVENT DATE: 20161024
